FAERS Safety Report 20609061 (Version 2)
Quarter: 2022Q1

REPORT INFORMATION
  Report Type: Spontaneous
  Country: US (occurrence: US)
  Receive Date: 20220317
  Receipt Date: 20220331
  Transmission Date: 20220423
  Serious: Yes (Hospitalization, Congenital Anomaly)
  Sender: FDA-Public Use
  Company Number: US-TEVA-2022-US-2016703

PATIENT
  Sex: Female

DRUGS (1)
  1. METHOTREXATE [Suspect]
     Active Substance: METHOTREXATE
     Indication: Abortion
     Route: 064

REACTIONS (4)
  - Moebius II syndrome [Unknown]
  - VIth nerve paralysis [Unknown]
  - Facial paralysis [Unknown]
  - Foetal exposure during pregnancy [Unknown]
